FAERS Safety Report 6716063-4 (Version None)
Quarter: 2010Q2

REPORT INFORMATION
  Report Type: 
  Country: None (occurrence: None)
  Receive Date: 20100507
  Receipt Date: 20100429
  Transmission Date: 20101027
  Serious: Yes (Hospitalization)
  Sender: FDA-Public Use
  Company Number: A0857392A

PATIENT
  Sex: Female
  Weight: 98 kg

DRUGS (4)
  1. PAZOPANIB [Suspect]
     Dosage: 800MG PER DAY
     Route: 048
  2. PACLITAXEL [Suspect]
     Dosage: 80MGM2 CYCLIC
     Route: 042
  3. DOXORUBICIN HCL [Suspect]
     Dosage: 60MGM2 CYCLIC
     Route: 042
     Dates: start: 20100122, end: 20100326
  4. CYCLOPHOSPHAMIDE [Suspect]
     Dosage: 600MGM2 CYCLIC
     Route: 042
     Dates: start: 20100122, end: 20100326

REACTIONS (2)
  - DEPRESSED MOOD [None]
  - INFECTION [None]
